FAERS Safety Report 12530250 (Version 2)
Quarter: 2016Q3

REPORT INFORMATION
  Report Type: Spontaneous
  Country: US (occurrence: US)
  Receive Date: 20160706
  Receipt Date: 20160722
  Transmission Date: 20161109
  Serious: No
  Sender: FDA-Public Use
  Company Number: US-PFIZER INC-2016295362

PATIENT
  Age: 66 Year
  Sex: Female

DRUGS (23)
  1. CALCIUM [Concomitant]
     Active Substance: CALCIUM
  2. ZALEPLON. [Concomitant]
     Active Substance: ZALEPLON
  3. SENOKOT-S [Concomitant]
     Active Substance: DOCUSATE SODIUM\SENNOSIDES
  4. XANAX [Concomitant]
     Active Substance: ALPRAZOLAM
  5. FAMOTIDINE. [Concomitant]
     Active Substance: FAMOTIDINE
  6. NORCO [Concomitant]
     Active Substance: ACETAMINOPHEN\HYDROCODONE BITARTRATE
  7. ASPIRIN. [Concomitant]
     Active Substance: ASPIRIN
     Dosage: UNK
  8. SPIRIVA [Concomitant]
     Active Substance: TIOTROPIUM BROMIDE MONOHYDRATE
     Dosage: UNK
  9. IBRANCE [Suspect]
     Active Substance: PALBOCICLIB
     Indication: BREAST CANCER
     Dosage: 125 MG, CYCLIC (1 CAPSULE EVERY DAY FOR 21DAYS ON AND THEN 7 DAYS OFF)
     Dates: start: 20160317, end: 201605
  10. LOSARTAN. [Concomitant]
     Active Substance: LOSARTAN
     Dosage: UNK
  11. ASPIRIN (E.C.) [Concomitant]
     Active Substance: ASPIRIN
  12. LOSARTAN POTASSIUM. [Concomitant]
     Active Substance: LOSARTAN POTASSIUM
  13. MYCOPHENOLATE MOFETIL. [Concomitant]
     Active Substance: MYCOPHENOLATE MOFETIL
  14. VITAMIN D [Concomitant]
     Active Substance: CHOLECALCIFEROL
  15. ALPRAZOLAM. [Concomitant]
     Active Substance: ALPRAZOLAM
  16. LETROZOLE. [Concomitant]
     Active Substance: LETROZOLE
  17. METOPROLOL TARTRATE. [Concomitant]
     Active Substance: METOPROLOL TARTRATE
  18. PREDNISONE. [Concomitant]
     Active Substance: PREDNISONE
  19. METOPROLOL. [Concomitant]
     Active Substance: METOPROLOL
     Dosage: UNK
  20. PEPCID [Concomitant]
     Active Substance: FAMOTIDINE
  21. SPIRIVA [Concomitant]
     Active Substance: TIOTROPIUM BROMIDE MONOHYDRATE
  22. SENOKOT [Concomitant]
     Active Substance: SENNOSIDES
     Dosage: UNK
  23. CALCIUM CITRATE [Concomitant]
     Active Substance: CALCIUM CITRATE
     Dosage: UNK

REACTIONS (1)
  - Weight decreased [Unknown]
